FAERS Safety Report 15755176 (Version 1)
Quarter: 2018Q4

REPORT INFORMATION
  Report Type: Spontaneous
  Country: GB (occurrence: GB)
  Receive Date: 20181224
  Receipt Date: 20181224
  Transmission Date: 20190205
  Serious: Yes (Other)
  Sender: FDA-Public Use
  Company Number: GB-TEVA-2018-GB-990109

PATIENT
  Age: 58 Year
  Sex: Female
  Weight: 43 kg

DRUGS (4)
  1. DOXYCYCLINE. [Suspect]
     Active Substance: DOXYCYCLINE
     Dosage: 200 MILLIGRAM DAILY; (5 TO 6 HOURS APART) ON THE FIRST DAY
     Route: 048
     Dates: start: 20181112, end: 20181112
  2. LEVOTHYROXINE SODIUM. [Concomitant]
     Active Substance: LEVOTHYROXINE SODIUM
  3. DOXYCYCLINE. [Suspect]
     Active Substance: DOXYCYCLINE
     Indication: BRONCHIECTASIS
     Dosage: 100 MILLIGRAM DAILY; THEN ONE DAILY THEREAFTER
     Route: 048
     Dates: start: 20181113
  4. CARBOCISTEINE [Concomitant]
     Active Substance: CARBOCYSTEINE
     Dosage: 2250 MILLIGRAM DAILY;
     Route: 065
     Dates: start: 20181109

REACTIONS (2)
  - Musculoskeletal discomfort [Unknown]
  - Tinnitus [Unknown]

NARRATIVE: CASE EVENT DATE: 20181112
